FAERS Safety Report 5674626-1 (Version None)
Quarter: 2008Q1

REPORT INFORMATION
  Report Type: 
  Country: None (occurrence: None)
  Receive Date: 20080319
  Receipt Date: 20080319
  Transmission Date: 20080703
  Serious: Yes (Death)
  Sender: FDA-Public Use
  Company Number: None

PATIENT
  Age: 42 Year
  Sex: Male
  Weight: 68.0396 kg

DRUGS (1)
  1. PREDNISONE TAB [Suspect]
     Indication: RHEUMATOID ARTHRITIS
     Dosage: 1 QD
     Dates: start: 19850815, end: 20000623

REACTIONS (6)
  - ATRIAL FIBRILLATION [None]
  - HAEMOLYTIC ANAEMIA [None]
  - MALAISE [None]
  - PERICARDIAL EFFUSION [None]
  - SUBDURAL HAEMATOMA [None]
  - THROMBOTIC STROKE [None]
